FAERS Safety Report 5047038-1 (Version None)
Quarter: 2006Q3

REPORT INFORMATION
  Report Type: 
  Country: None (occurrence: None)
  Receive Date: 20060703
  Receipt Date: 20060622
  Transmission Date: 20061208
  Serious: Yes (Death, Disabling, Other)
  Sender: FDA-Public Use
  Company Number: 2006008685

PATIENT
  Age: 24 Year
  Sex: Female
  Weight: 50 kg

DRUGS (2)
  1. FLUCONAZOLE [Suspect]
     Indication: CANDIDIASIS
     Dosage: 800 MG (100 MG, BID), ORAL
     Route: 048
     Dates: start: 20050928, end: 20051125
  2. VINCRISTINE [Suspect]
     Indication: ACUTE LYMPHOCYTIC LEUKAEMIA
     Dosage: 2 MG (CYCLICAL), INTRAVENOUS
     Route: 042
     Dates: start: 20051025, end: 20051109

REACTIONS (6)
  - ACUTE LYMPHOCYTIC LEUKAEMIA RECURRENT [None]
  - DRUG INTERACTION [None]
  - NEUROGENIC BLADDER [None]
  - NEUROPATHY PERIPHERAL [None]
  - OBSTRUCTIVE UROPATHY [None]
  - RENAL FAILURE [None]
